FAERS Safety Report 4964628-2 (Version None)
Quarter: 2006Q2

REPORT INFORMATION
  Report Type: 
  Country: None (occurrence: None)
  Receive Date: 20060406
  Receipt Date: 20051114
  Transmission Date: 20061013
  Serious: Yes (Hospitalization)
  Sender: FDA-Public Use
  Company Number: US-MERCK-0511USA02746

PATIENT
  Age: 56 Year
  Sex: Female
  Weight: 77 kg

DRUGS (2)
  1. VIOXX [Suspect]
     Indication: FIBROMYALGIA
     Route: 048
     Dates: start: 20020501, end: 20021001
  2. ULTRAM [Concomitant]
     Route: 065

REACTIONS (5)
  - CARDIAC FAILURE [None]
  - CARDIOMYOPATHY [None]
  - CHEST DISCOMFORT [None]
  - DYSPNOEA [None]
  - MYOCARDIAL INFARCTION [None]
